FAERS Safety Report 5541786-2 (Version None)
Quarter: 2007Q4

REPORT INFORMATION
  Report Type: 
  Country: None (occurrence: None)
  Receive Date: 20071210
  Receipt Date: 20071204
  Transmission Date: 20080405
  Serious: Yes (Hospitalization)
  Sender: FDA-Public Use
  Company Number: B0497196A

PATIENT
  Age: 74 Year
  Sex: Male

DRUGS (24)
  1. ZOVIRAX [Suspect]
     Indication: DRUG USE FOR UNKNOWN INDICATION
     Route: 048
     Dates: start: 20071112, end: 20071116
  2. VALTREX [Suspect]
     Indication: DRUG USE FOR UNKNOWN INDICATION
     Route: 048
  3. BRUFEN [Suspect]
     Indication: DRUG USE FOR UNKNOWN INDICATION
     Route: 048
     Dates: start: 20071120, end: 20071120
  4. BRUFEN [Suspect]
     Dosage: 1400MG PER DAY
     Route: 048
  5. BRUFEN [Suspect]
     Dosage: 1300MG PER DAY
     Route: 048
     Dates: start: 20071122, end: 20071122
  6. BRUFEN [Suspect]
     Dosage: 1200MG PER DAY
     Route: 048
     Dates: start: 20071123, end: 20071123
  7. BRUFEN [Suspect]
     Dosage: 1100MG PER DAY
     Route: 048
     Dates: start: 20071124, end: 20071124
  8. BRUFEN [Suspect]
     Dosage: 1000MG PER DAY
     Route: 048
     Dates: start: 20071125, end: 20071125
  9. BRUFEN [Suspect]
     Dosage: 900MG PER DAY
     Route: 048
     Dates: start: 20071126, end: 20071126
  10. BRUFEN [Suspect]
     Dosage: 800MG PER DAY
     Route: 048
     Dates: start: 20071127, end: 20071127
  11. BRUFEN [Suspect]
     Dosage: 600MG PER DAY
     Route: 048
     Dates: start: 20071128
  12. CIBENOL [Concomitant]
     Dosage: 300MG PER DAY
     Route: 048
  13. WARFARIN SODIUM [Concomitant]
     Route: 048
     Dates: start: 20071120, end: 20071120
  14. WARFARIN SODIUM [Concomitant]
     Route: 048
     Dates: start: 20071121, end: 20071129
  15. WARFARIN SODIUM [Concomitant]
     Route: 048
     Dates: start: 20071130
  16. ZANTAC [Concomitant]
     Dosage: 300MG PER DAY
     Route: 048
  17. LIPITOR [Concomitant]
     Dosage: 5MG PER DAY
     Route: 048
  18. TENORMIN [Concomitant]
     Dosage: 25MG PER DAY
     Route: 048
  19. PREDONINE [Concomitant]
     Dosage: 15MG PER DAY
     Route: 048
  20. CYTOTEC [Concomitant]
     Dosage: 800MCG PER DAY
     Route: 048
  21. FUNGIZONE [Concomitant]
     Dosage: 3ML PER DAY
     Route: 048
     Dates: start: 20071129
  22. RELIFEN [Concomitant]
     Route: 048
  23. BONALON [Concomitant]
     Route: 048
  24. UNKNOWN DRUG [Concomitant]
     Route: 065

REACTIONS (5)
  - ALTERED STATE OF CONSCIOUSNESS [None]
  - DYSARTHRIA [None]
  - GAIT DISTURBANCE [None]
  - STUPOR [None]
  - TREMOR [None]
